FAERS Safety Report 7057422-2 (Version None)
Quarter: 2010Q4

REPORT INFORMATION
  Report Type: 
  Country: None (occurrence: None)
  Receive Date: 20101021
  Receipt Date: 20101021
  Transmission Date: 20110411
  Serious: No
  Sender: FDA-Public Use
  Company Number: None

PATIENT
  Age: 34 Year
  Sex: Female

DRUGS (1)
  1. GREEN TEA FAT BURNER [Suspect]
     Indication: LIVER INJURY
     Dates: start: 20090401, end: 20090528

REACTIONS (2)
  - HEPATIC NECROSIS [None]
  - HEPATITIS ACUTE [None]
